FAERS Safety Report 5765185-3 (Version None)
Quarter: 2008Q2

REPORT INFORMATION
  Report Type: 
  Country: None (occurrence: None)
  Receive Date: 20080610
  Receipt Date: 20080610
  Transmission Date: 20081010
  Serious: Yes (Death, Hospitalization)
  Sender: FDA-Public Use
  Company Number: None

PATIENT
  Age: 39 Year
  Sex: Male
  Weight: 90.7194 kg

DRUGS (2)
  1. DIGITEK  0.125MG  MYLAN BERT [Suspect]
     Indication: CARDIAC FAILURE
     Dosage: 30  ONCE ADAY
     Dates: start: 20060101, end: 20070901
  2. DIGITEK  0.125MG  MYLAN BERT [Suspect]
     Indication: HYPERTENSION
     Dosage: 30  ONCE ADAY
     Dates: start: 20060101, end: 20070901

REACTIONS (8)
  - BRADYCARDIA [None]
  - CARDIAC DISORDER [None]
  - DIZZINESS [None]
  - HYPOTENSION [None]
  - NAUSEA [None]
  - PHARMACEUTICAL PRODUCT COMPLAINT [None]
  - THERAPEUTIC AGENT TOXICITY [None]
  - VOMITING [None]
